FAERS Safety Report 5085452-9 (Version None)
Quarter: 2006Q3

REPORT INFORMATION
  Report Type: 
  Country: None (occurrence: None)
  Receive Date: 20060810
  Receipt Date: 20060803
  Transmission Date: 20061208
  Serious: Yes (Life-Threatening, Hospitalization)
  Sender: FDA-Public Use
  Company Number: HQ1162304MAR2002

PATIENT
  Age: 11 Month
  Sex: Male
  Weight: 11.65 kg

DRUGS (3)
  1. BENEFIX [Suspect]
     Indication: FACTOR IX DEFICIENCY
     Dosage: 1470 IU 1X PER 1 DAY, INTRAVENOUS
     Route: 042
     Dates: start: 19971031, end: 19971031
  2. BENEFIX [Suspect]
     Indication: FACTOR IX DEFICIENCY
     Dosage: 1470 IU 1X PER 1 DAY, INTRAVENOUS
     Route: 042
     Dates: start: 19971103, end: 19971103
  3. BENEFIX [Suspect]
     Indication: FACTOR IX DEFICIENCY
     Dosage: 1470 IU 1X PER 1 DAY, INTRAVENOUS
     Route: 042
     Dates: start: 19971105, end: 19971105

REACTIONS (2)
  - ANAPHYLACTIC REACTION [None]
  - ANTI FACTOR VIII ANTIBODY POSITIVE [None]
